FAERS Safety Report 5102486-6 (Version None)
Quarter: 2006Q3

REPORT INFORMATION
  Report Type: 
  Country: None (occurrence: None)
  Receive Date: 20060907
  Receipt Date: 20060825
  Transmission Date: 20061208
  Serious: Yes (Death)
  Sender: FDA-Public Use
  Company Number: 14696

PATIENT
  Age: 51 Year
  Sex: Male

DRUGS (2)
  1. HYDROMORPHONE HCL [Suspect]
  2. UNSPECIFIED SALICYLATE [Concomitant]

REACTIONS (6)
  - ALCOHOL POISONING [None]
  - CELL DEATH [None]
  - DRUG ABUSER [None]
  - DRUG TOXICITY [None]
  - HEPATIC FAILURE [None]
  - LUNG DISORDER [None]
